FAERS Safety Report 10694743 (Version 2)
Quarter: 2015Q2

REPORT INFORMATION
  Report Type: Spontaneous
  Country: US (occurrence: US)
  Receive Date: 20150107
  Receipt Date: 20150407
  Transmission Date: 20150821
  Serious: Yes (Other)
  Sender: FDA-Public Use
  Company Number: US-BAYER-2015-001691

PATIENT
  Age: 27 Year
  Sex: Female
  Weight: 52.15 kg

DRUGS (1)
  1. MIRENA [Suspect]
     Active Substance: LEVONORGESTREL
     Indication: CONTRACEPTION
     Dosage: 20 MCG/24HR, CONT
     Route: 015
     Dates: start: 2010, end: 2011

REACTIONS (9)
  - Emotional distress [None]
  - Abdominal pain [None]
  - Pain [None]
  - Drug ineffective [None]
  - Depression [None]
  - Pregnancy with contraceptive device [None]
  - Device dislocation [None]
  - Foetal death [None]
  - Injury [None]

NARRATIVE: CASE EVENT DATE: 2011
